FAERS Safety Report 7456111-X (Version None)
Quarter: 2011Q2

REPORT INFORMATION
  Report Type: 
  Country: None (occurrence: None)
  Receive Date: 20110503
  Receipt Date: 20110429
  Transmission Date: 20111010
  Serious: No
  Sender: FDA-Public Use
  Company Number: US-PFIZER INC-2011093174

PATIENT
  Sex: Male
  Weight: 91 kg

DRUGS (1)
  1. RELPAX [Suspect]
     Indication: MIGRAINE
     Dosage: 20 MG, 2X/DAY
     Route: 048
     Dates: start: 20110414, end: 20110414

REACTIONS (3)
  - ABDOMINAL PAIN UPPER [None]
  - NAUSEA [None]
  - VOMITING [None]
